FAERS Safety Report 18059189 (Version 1)
Quarter: 2020Q3

REPORT INFORMATION
  Report Type: Spontaneous
  Country: IT (occurrence: IT)
  Receive Date: 20200723
  Receipt Date: 20200723
  Transmission Date: 20201103
  Serious: Yes (Hospitalization)
  Sender: FDA-Public Use
  Company Number: IT-ASTRAZENECA-2020SE89653

PATIENT
  Age: 60 Year
  Sex: Male

DRUGS (5)
  1. ATORVASTATINA TEVA ITALIA [Concomitant]
     Active Substance: ATORVASTATIN CALCIUM
     Route: 048
  2. ACIDO ACETILSALICILICO TEVA ITALIA [Concomitant]
     Active Substance: ASPIRIN
     Route: 048
  3. PANTOPRAZOLO TEVA ITALIA [Concomitant]
     Active Substance: PANTOPRAZOLE SODIUM
     Route: 048
  4. RAMIPRIL RATIOPHARM [Concomitant]
     Active Substance: RAMIPRIL
     Route: 048
  5. BRILIQUE [Suspect]
     Active Substance: TICAGRELOR
     Route: 048
     Dates: start: 20191119, end: 20200120

REACTIONS (3)
  - Oesophageal haemorrhage [Recovered/Resolved]
  - Anaemia [Recovered/Resolved]
  - Melaena [Recovered/Resolved]

NARRATIVE: CASE EVENT DATE: 20200120
